FAERS Safety Report 21339626 (Version 2)
Quarter: 2022Q4

REPORT INFORMATION
  Report Type: Spontaneous
  Country: US (occurrence: US)
  Receive Date: 20220915
  Receipt Date: 20221109
  Transmission Date: 20230112
  Serious: No
  Sender: FDA-Public Use
  Company Number: US-SA-SAC20220913001067

PATIENT
  Sex: Male

DRUGS (1)
  1. DUPIXENT [Suspect]
     Active Substance: DUPILUMAB
     Indication: Asthma
     Dosage: 300 MG, QOW
     Route: 058
     Dates: start: 20220913

REACTIONS (5)
  - Eyelid irritation [Unknown]
  - Visual impairment [Unknown]
  - Eye disorder [Unknown]
  - Pruritus [Unknown]
  - Drug hypersensitivity [Unknown]
